FAERS Safety Report 10200367 (Version 1)
Quarter: 2014Q2

REPORT INFORMATION
  Report Type: Spontaneous
  Country: CN (occurrence: CN)
  Receive Date: 20140528
  Receipt Date: 20140528
  Transmission Date: 20141212
  Serious: Yes (Other)
  Sender: FDA-Public Use
  Company Number: CN-PFIZER INC-2014140639

PATIENT
  Age: 75 Year
  Sex: Female
  Weight: 50 kg

DRUGS (7)
  1. SULPERAZON [Suspect]
     Indication: INFECTION
     Dosage: 3 G, 3X/DAY
     Route: 041
     Dates: start: 20130330, end: 20130416
  2. LINEZOLID [Suspect]
     Indication: INFECTION
     Dosage: 60 MG, 2X/DAY
     Route: 041
     Dates: start: 20130325, end: 20130329
  3. HYDROCHLOROTHIAZIDE [Suspect]
     Dosage: 25 MG, 1X/DAY
     Route: 048
     Dates: start: 20130323, end: 20130412
  4. LEVOFLOXACIN HYDROCHLORIDE [Suspect]
     Indication: INFECTION
     Dosage: 0.3 G, 2X/DAY
     Route: 041
     Dates: start: 20130323, end: 20130328
  5. AVELOX [Suspect]
     Indication: INFECTION
     Dosage: 400 MG, 1X/DAY
     Route: 041
     Dates: start: 20130328, end: 20130416
  6. SPIROLACTONE [Suspect]
     Dosage: 20 MG, 2X/DAY
     Route: 048
     Dates: start: 20130323, end: 20130412
  7. DICLOFENAC [Concomitant]
     Dosage: 25 MG, 3X/DAY
     Route: 048
     Dates: start: 20130409, end: 20130412

REACTIONS (6)
  - Gastroenteritis shigella [Recovering/Resolving]
  - Gastroenteritis salmonella [Recovering/Resolving]
  - Diarrhoea [Recovering/Resolving]
  - Nausea [Recovering/Resolving]
  - Vomiting [Recovering/Resolving]
  - Decreased appetite [Recovering/Resolving]
